FAERS Safety Report 21972786 (Version 2)
Quarter: 2023Q1

REPORT INFORMATION
  Report Type: Spontaneous
  Country: CA (occurrence: CA)
  Receive Date: 20230209
  Receipt Date: 20230329
  Transmission Date: 20230417
  Serious: Yes (Other)
  Sender: FDA-Public Use
  Company Number: CA-PFIZER INC-202300058766

PATIENT
  Age: 65 Year
  Sex: Female

DRUGS (1)
  1. ABRILADA [Suspect]
     Active Substance: ADALIMUMAB-AFZB
     Indication: Crohn^s disease
     Dosage: 1 DF 160 MG AT WEEK 0, 80 MG AT WEEK 2 AND 40MG EVERY WEEK BEGINNING AT WEEK 4PREFILLED PEN
     Route: 058
     Dates: start: 20221219

REACTIONS (2)
  - Arthropathy [Not Recovered/Not Resolved]
  - Off label use [Unknown]
